FAERS Safety Report 10595194 (Version 1)
Quarter: 2014Q4

REPORT INFORMATION
  Report Type: Spontaneous
  Country: CH (occurrence: CH)
  Receive Date: 20141120
  Receipt Date: 20141120
  Transmission Date: 20150529
  Serious: Yes (Hospitalization)
  Sender: FDA-Public Use
  Company Number: CH-ROCHE-1489989

PATIENT
  Age: 59 Year
  Sex: Female

DRUGS (11)
  1. CALCIMAGON [Concomitant]
     Active Substance: CALCIUM
     Route: 065
  2. MEFENAMIC-ACID [Concomitant]
     Active Substance: MEFENAMIC ACID
     Route: 065
  3. HUMIRA [Suspect]
     Active Substance: ADALIMUMAB
     Indication: ARTHRALGIA
     Route: 051
     Dates: start: 2013, end: 2014
  4. URSODIOL. [Concomitant]
     Active Substance: URSODIOL
     Route: 065
  5. IMUREK [Suspect]
     Active Substance: AZATHIOPRINE
     Indication: ARTHRALGIA
     Route: 048
     Dates: start: 200709, end: 201209
  6. ACTEMRA [Suspect]
     Active Substance: TOCILIZUMAB
     Indication: ARTHRALGIA
     Route: 051
     Dates: start: 201405, end: 201408
  7. PALEXIA [Concomitant]
     Active Substance: TAPENTADOL HYDROCHLORIDE
     Route: 065
  8. IMUREK [Suspect]
     Active Substance: AZATHIOPRINE
     Indication: ARTHRALGIA
     Route: 048
     Dates: start: 200611, end: 200702
  9. SIMPONI [Suspect]
     Active Substance: GOLIMUMAB
     Indication: ARTHRALGIA
     Route: 051
     Dates: start: 2013, end: 2013
  10. OMEPRAZOL [Concomitant]
     Active Substance: OMEPRAZOLE
     Route: 065
  11. METHOTREXATE (METHOTREXATE SODIUM) [Suspect]
     Active Substance: METHOTREXATE SODIUM
     Indication: ARTHRALGIA
     Route: 048
     Dates: start: 2007, end: 2007

REACTIONS (4)
  - Acute myeloid leukaemia [Unknown]
  - Blast cells present [Unknown]
  - Leukopenia [Unknown]
  - Thrombocytopenia [Unknown]

NARRATIVE: CASE EVENT DATE: 201408
